FAERS Safety Report 8193950-4 (Version None)
Quarter: 2012Q1

REPORT INFORMATION
  Report Type: 
  Country: None (occurrence: None)
  Receive Date: 20120308
  Receipt Date: 20120302
  Transmission Date: 20120608
  Serious: Yes (Other)
  Sender: FDA-Public Use
  Company Number: GB-B.I. PHARMACEUTICALS,INC./RIDGEFIELD-2012-UK-00322UK

PATIENT
  Age: 85 Year
  Sex: Male

DRUGS (2)
  1. PPI [Concomitant]
  2. PRADAXA [Suspect]

REACTIONS (6)
  - DYSPEPSIA [None]
  - FALL [None]
  - VOMITING [None]
  - ABDOMINAL PAIN [None]
  - SOMNOLENCE [None]
  - DIZZINESS [None]
